FAERS Safety Report 15316840 (Version 1)
Quarter: 2018Q3

REPORT INFORMATION
  Report Type: Spontaneous
  Country: FR (occurrence: FR)
  Receive Date: 20180824
  Receipt Date: 20180824
  Transmission Date: 20181010
  Serious: Yes (Other)
  Sender: FDA-Public Use
  Company Number: PHHY2018FR076060

PATIENT
  Age: 13 Year
  Sex: Female

DRUGS (6)
  1. ONDANSETRON HYDROCHLORIDE. [Suspect]
     Active Substance: ONDANSETRON HYDROCHLORIDE
     Indication: PROPHYLAXIS OF NAUSEA AND VOMITING
     Dosage: UNK
     Route: 065
  2. TRAMADOL. [Suspect]
     Active Substance: TRAMADOL
     Indication: PRODUCT USED FOR UNKNOWN INDICATION
     Dosage: UNK
     Route: 065
  3. IFOSFAMIDE. [Suspect]
     Active Substance: IFOSFAMIDE
     Indication: OSTEOSARCOMA
     Dosage: 3 G, QD (3 HOURS INFUSION 3G/M? DAILY)
     Route: 042
  4. METHOTREXATE. [Concomitant]
     Active Substance: METHOTREXATE
     Indication: OSTEOSARCOMA
     Dosage: 12 G, QD (12G/M?/DAY INFUSION ONCE A WEEK)
     Route: 042
  5. ETOPOSIDE. [Concomitant]
     Active Substance: ETOPOSIDE
     Indication: OSTEOSARCOMA
     Dosage: FROM DAY 1 TO DAY 4 (WEEKS 4 AND 9)
     Route: 065
  6. UROMITEXAN [Concomitant]
     Active Substance: MESNA
     Indication: OSTEOSARCOMA
     Dosage: FROM DAY 1 TO DAY 4 (WEEKS 4 AND 9)
     Route: 065

REACTIONS (4)
  - Encephalopathy [Unknown]
  - Confusional state [Unknown]
  - Electroencephalogram abnormal [Unknown]
  - Hallucination [Unknown]
